FAERS Safety Report 4723332-6 (Version None)
Quarter: 2005Q3

REPORT INFORMATION
  Report Type: 
  Country: None (occurrence: None)
  Receive Date: 20050725
  Receipt Date: 20030930
  Transmission Date: 20060218
  Serious: Yes (Death, Hospitalization)
  Sender: FDA-Public Use
  Company Number: PHBS2003JP10712

PATIENT
  Age: 49 Year
  Sex: Male
  Weight: 35 kg

DRUGS (21)
  1. METHYLPREDNISOLONE [Concomitant]
     Dosage: 250 MG
     Route: 042
     Dates: start: 20030802
  2. PROGRAF [Suspect]
     Indication: RENAL TRANSPLANT
     Dosage: 11 - 4 MG
     Route: 048
     Dates: start: 20030807, end: 20030905
  3. PROGRAF [Suspect]
     Dosage: 2 - 8 MG
     Route: 042
     Dates: start: 20030802, end: 20030807
  4. PREDONINE [Suspect]
     Indication: RENAL TRANSPLANT
     Dosage: 5 - 50 MG
     Route: 048
     Dates: start: 20030802
  5. SIMULECT [Suspect]
     Indication: RENAL TRANSPLANT
     Dosage: 20 MG, ONCE/SINGLE
     Route: 042
     Dates: start: 20030802, end: 20030802
  6. SIMULECT [Suspect]
     Dosage: 20 MG, ONCE/SINGLE
     Route: 042
     Dates: start: 20030806, end: 20030806
  7. CELLCEPT [Suspect]
     Indication: RENAL TRANSPLANT
     Dosage: 1.5 - 5 MG
     Dates: start: 20030802, end: 20030815
  8. LIPOVAS ^BANYU^ [Concomitant]
  9. ASPIRIN [Concomitant]
  10. SALOBEL [Concomitant]
  11. GASTER D [Concomitant]
  12. AMOBAN [Concomitant]
  13. ALOSENN [Concomitant]
  14. GLAKAY [Concomitant]
  15. CALCIUM CARBONATE [Concomitant]
  16. MARZULENE S [Concomitant]
  17. LASIX [Concomitant]
  18. ANHIBA [Concomitant]
  19. FLOMOX [Concomitant]
  20. BAKTAR [Concomitant]
  21. DIFLUCAN [Concomitant]

REACTIONS (17)
  - ACUTE PULMONARY OEDEMA [None]
  - ACUTE RESPIRATORY DISTRESS SYNDROME [None]
  - ANAEMIA [None]
  - BLOOD GASES ABNORMAL [None]
  - BLOOD PRESSURE DECREASED [None]
  - CARDIAC FAILURE CHRONIC [None]
  - DEHYDRATION [None]
  - DYSPNOEA [None]
  - ENTEROCOCCAL BACTERAEMIA [None]
  - HYPERURICOSURIA [None]
  - NEPHROPATHY TOXIC [None]
  - OEDEMA [None]
  - PYELONEPHRITIS [None]
  - PYREXIA [None]
  - RENAL IMPAIRMENT [None]
  - SPUTUM CULTURE POSITIVE [None]
  - WEIGHT INCREASED [None]
